FAERS Safety Report 5289111-9 (Version None)
Quarter: 2007Q1

REPORT INFORMATION
  Report Type: 
  Country: None (occurrence: None)
  Receive Date: 20070124
  Receipt Date: 20061030
  Transmission Date: 20070707
  Serious: Yes (Hospitalization)
  Sender: FDA-Public Use
  Company Number: US200610004491

PATIENT
  Age: 77 Year
  Sex: Female

DRUGS (3)
  1. FORTEO [Suspect]
     Indication: OSTEOPOROSIS
     Dates: start: 20060401
  2. FORTEO PEN (250MCG/ML) 9FORTEO PEN 250MCG/ML (3ML)) PEN, DISPOSABLE [Concomitant]
  3. FORTEO PEN (250MCG/ML) (FORTEO PEN 250MCG/ML0 (3ML)) PEN, DISPOSABLE [Concomitant]

REACTIONS (5)
  - DIARRHOEA [None]
  - LARYNGITIS [None]
  - MALAISE [None]
  - NASOPHARYNGITIS [None]
  - PHARYNGOLARYNGEAL PAIN [None]
